FAERS Safety Report 20993769 (Version 2)
Quarter: 2022Q3

REPORT INFORMATION
  Report Type: Spontaneous
  Country: US (occurrence: US)
  Receive Date: 20220622
  Receipt Date: 20220806
  Transmission Date: 20221027
  Serious: No
  Sender: FDA-Public Use
  Company Number: US-BRISTOL-MYERS SQUIBB COMPANY-2022-055778

PATIENT
  Age: 82 Year
  Sex: Female

DRUGS (1)
  1. REVLIMID [Suspect]
     Active Substance: LENALIDOMIDE
     Indication: Myelodysplastic syndrome
     Dosage: 5 MILLIGRAM DAILY
     Route: 048
     Dates: start: 202001

REACTIONS (3)
  - Peripheral swelling [Not Recovered/Not Resolved]
  - Haemoptysis [Unknown]
  - Blood urine present [Unknown]

NARRATIVE: CASE EVENT DATE: 20220609
